FAERS Safety Report 14320861 (Version 1)
Quarter: 2017Q4

REPORT INFORMATION
  Report Type: Spontaneous
  Country: US (occurrence: US)
  Receive Date: 20171223
  Receipt Date: 20171223
  Transmission Date: 20180321
  Serious: Yes (Other)
  Sender: FDA-Public Use
  Company Number: US-AMGEN-USASP2017179767

PATIENT
  Age: 80 Year
  Sex: Male
  Weight: 77.55 kg

DRUGS (4)
  1. METOPROLOLTARTRAT [Concomitant]
     Indication: HYPERTENSION
     Dosage: 75 MG, BID
     Dates: start: 20170922
  2. ISOSORBIDE MONONITE [Concomitant]
     Indication: CORONARY ARTERY DISEASE
     Dosage: 15 MG, QD
     Dates: start: 20171113
  3. PLAVIX [Concomitant]
     Active Substance: CLOPIDOGREL BISULFATE
     Indication: ACUTE MYOCARDIAL INFARCTION
     Dosage: 75 MG, QD
     Dates: start: 20140116
  4. REPATHA [Suspect]
     Active Substance: EVOLOCUMAB
     Indication: BLOOD CHOLESTEROL INCREASED
     Dosage: 140 MG, Q2WK
     Route: 065
     Dates: start: 20171116

REACTIONS (3)
  - Musculoskeletal chest pain [Recovering/Resolving]
  - Choking [Recovering/Resolving]
  - Oropharyngeal pain [Recovering/Resolving]

NARRATIVE: CASE EVENT DATE: 20171116
